FAERS Safety Report 7313326-9 (Version None)
Quarter: 2011Q1

REPORT INFORMATION
  Report Type: 
  Country: None (occurrence: None)
  Receive Date: 20110225
  Receipt Date: 20101228
  Transmission Date: 20110831
  Serious: No
  Sender: FDA-Public Use
  Company Number: US-MYLANLABS-2010S1021511

PATIENT
  Age: 56 Year
  Sex: Male

DRUGS (6)
  1. DIOVAN [Concomitant]
  2. LIPITOR [Concomitant]
     Indication: BLOOD CHOLESTEROL
  3. ASPIRIN [Concomitant]
  4. LANTUS [Concomitant]
     Indication: DIABETES MELLITUS
  5. METFORMIN HCL [Suspect]
     Indication: DIABETES MELLITUS
     Dosage: PATIENT TAKES (2) 500MG TABLETS EVERY MORNING AND (2) 500MG TABLETS EVERY NIGHT WITH DINNER.
     Route: 048
     Dates: start: 20100920
  6. JANUVIA [Concomitant]

REACTIONS (2)
  - BLOOD GLUCOSE INCREASED [None]
  - DRUG INEFFECTIVE [None]
